FAERS Safety Report 14341397 (Version 1)
Quarter: 2018Q1

REPORT INFORMATION
  Report Type: Report from Study
  Country: US (occurrence: US)
  Receive Date: 20180102
  Receipt Date: 20180102
  Transmission Date: 20180509
  Serious: Yes (Other)
  Sender: FDA-Public Use
  Company Number: US-CIPLA LTD.-2017US29493

PATIENT

DRUGS (6)
  1. VALACYCLOVIR [Suspect]
     Active Substance: VALACYCLOVIR HYDROCHLORIDE
     Indication: ANTIVIRAL PROPHYLAXIS
     Dosage: 500 MG, QD, DAY -1 THROUGH DAY 100
     Route: 048
  2. FLUDARABINE [Suspect]
     Active Substance: FLUDARABINE PHOSPHATE
     Indication: HAEMATOPOIETIC STEM CELL MOBILISATION
     Dosage: 40 MG/M2, ON DAYS -6 THROUGH -3.
     Route: 042
  3. TACROLIMUS. [Suspect]
     Active Substance: TACROLIMUS
     Indication: SUPPORTIVE CARE
     Dosage: 0.015 MG/KG, QD, DAY -2
  4. MELPHALAN. [Suspect]
     Active Substance: MELPHALAN
     Indication: HAEMATOPOIETIC STEM CELL MOBILISATION
     Dosage: UNK, 140 OR 100 MG/M2 ON DAY -8
     Route: 042
  5. THIOTEPA. [Suspect]
     Active Substance: THIOTEPA
     Indication: HAEMATOPOIETIC STEM CELL MOBILISATION
     Dosage: UNK, 5-10 MG/KG ON DAY -7
     Route: 042
  6. MYCOPHENOLATE MOFETIL. [Suspect]
     Active Substance: MYCOPHENOLATE MOFETIL
     Indication: SUPPORTIVE CARE
     Dosage: 1 G, TID, DAY -2 TO DAY +100
     Route: 048

REACTIONS (1)
  - Transplant failure [Unknown]
